FAERS Safety Report 16458077 (Version 1)
Quarter: 2019Q3

REPORT INFORMATION
  Report Type: Spontaneous
  Country: US (occurrence: US)
  Receive Date: 20190619
  Receipt Date: 20190619
  Transmission Date: 20191004
  Serious: Yes (Life-Threatening, Disabling)
  Sender: FDA-Public Use
  Company Number: None

PATIENT
  Age: 25 Year
  Sex: Female
  Weight: 52.16 kg

DRUGS (2)
  1. SKYLA [Suspect]
     Active Substance: LEVONORGESTREL
  2. MULTI VITAMINS [Concomitant]
     Active Substance: VITAMINS

REACTIONS (16)
  - Weight decreased [None]
  - Inflammation [None]
  - Fatigue [None]
  - Migraine [None]
  - Mood swings [None]
  - Vomiting [None]
  - Depression [None]
  - Abdominal pain upper [None]
  - Contusion [None]
  - Cerebrovascular accident [None]
  - Headache [None]
  - Panic attack [None]
  - Enteritis [None]
  - Decreased appetite [None]
  - Anxiety [None]
  - Trichorrhexis [None]

NARRATIVE: CASE EVENT DATE: 20140718
